FAERS Safety Report 8090868-2 (Version None)
Quarter: 2012Q1

REPORT INFORMATION
  Report Type: 
  Country: None (occurrence: None)
  Receive Date: 20120131
  Receipt Date: 20120119
  Transmission Date: 20120608
  Serious: No
  Sender: FDA-Public Use
  Company Number: US-JNJFOC-20120108862

PATIENT
  Sex: Female
  Weight: 60.78 kg

DRUGS (6)
  1. DURAGESIC-100 [Suspect]
     Indication: ARTHRALGIA
     Route: 062
  2. DURAGESIC-100 [Suspect]
     Route: 062
  3. DURAGESIC-100 [Suspect]
     Dosage: 100 MCG+ 100MCG+ 50MCG
     Route: 062
  4. DURAGESIC-100 [Suspect]
     Route: 062
  5. FENTANYL-100 [Suspect]
     Indication: ARTHRALGIA
     Route: 062
  6. DURAGESIC-100 [Suspect]
     Route: 062

REACTIONS (4)
  - PRODUCT QUALITY ISSUE [None]
  - DRY SKIN [None]
  - INCORRECT DRUG ADMINISTRATION RATE [None]
  - PHOTOSENSITIVITY REACTION [None]
